FAERS Safety Report 7043003-3 (Version None)
Quarter: 2010Q3

REPORT INFORMATION
  Report Type: 
  Country: None (occurrence: None)
  Receive Date: 20100929
  Receipt Date: 20100607
  Transmission Date: 20110219
  Serious: No
  Sender: FDA-Public Use
  Company Number: US-WYE-H15527310

PATIENT
  Age: 39 Year
  Sex: Female
  Weight: 84.9 kg

DRUGS (7)
  1. PRISTIQ [Suspect]
     Indication: DEPRESSION
     Dosage: 50 MG 1X PER 1 DAY, ORAL
     Route: 048
     Dates: start: 20100604
  2. OPANA ER [Concomitant]
  3. METHADONE HCL [Concomitant]
  4. NORCO [Concomitant]
  5. SOMA [Concomitant]
  6. XANAX [Concomitant]
  7. ADVIL LIQUI-GELS [Concomitant]

REACTIONS (1)
  - OEDEMA PERIPHERAL [None]
